FAERS Safety Report 9279080 (Version 1)
Quarter: 2013Q2

REPORT INFORMATION
  Report Type: Spontaneous
  Country: IT (occurrence: IT)
  Receive Date: 20130508
  Receipt Date: 20130508
  Transmission Date: 20140414
  Serious: Yes (Hospitalization)
  Sender: FDA-Public Use
  Company Number: IT-ASTRAZENECA-2013SE30368

PATIENT
  Age: 10011 Day
  Sex: Female

DRUGS (3)
  1. SEROQUEL [Suspect]
     Indication: INTENTIONAL SELF-INJURY
     Route: 048
     Dates: start: 20130426, end: 20130426
  2. PALEXIA [Suspect]
     Indication: INTENTIONAL SELF-INJURY
     Route: 048
     Dates: start: 20130426, end: 20130426
  3. XANAX [Suspect]
     Indication: INTENTIONAL SELF-INJURY
     Dosage: 0.75 MG/ML ORAL DROPS, SOLUTION, 15 ML, SINGLE ADMINISTRATION
     Route: 048
     Dates: start: 20130426, end: 20130426

REACTIONS (6)
  - Intentional self-injury [Recovered/Resolved]
  - Sopor [Recovered/Resolved]
  - Bradyphrenia [Recovered/Resolved]
  - Bradykinesia [Recovered/Resolved]
  - Hypertonia [Recovered/Resolved]
  - Vomiting [Recovered/Resolved]
